FAERS Safety Report 9175577 (Version 1)
Quarter: 2012Q4

REPORT INFORMATION
  Report Type: Report from Study
  Country: US (occurrence: US)
  Receive Date: 20120917
  Receipt Date: 20120917
  Transmission Date: 20130627
  Serious: Yes (Other)
  Sender: FDA-Public Use
  Company Number: US-JNJFOC-20120903533

PATIENT
  Sex: Male
  Weight: 58.97 kg

DRUGS (4)
  1. REMICADE [Suspect]
     Indication: CROHN^S DISEASE
     Route: 042
     Dates: start: 201201
  2. ASACOL [Concomitant]
     Indication: CROHN^S DISEASE
     Route: 048
  3. MULTIVITAMINS [Concomitant]
     Route: 065
  4. TURMERIC [Concomitant]
     Route: 065

REACTIONS (3)
  - Drug effect decreased [Not Recovered/Not Resolved]
  - Crohn^s disease [Not Recovered/Not Resolved]
  - Immune system disorder [Unknown]
